FAERS Safety Report 9406983 (Version 2)
Quarter: 2013Q3

REPORT INFORMATION
  Report Type: Spontaneous
  Country: US (occurrence: US)
  Receive Date: 20130718
  Receipt Date: 20130927
  Transmission Date: 20140515
  Serious: Yes (Other)
  Sender: FDA-Public Use
  Company Number: US-PFIZER INC-2013207643

PATIENT
  Age: 68 Year
  Sex: Female

DRUGS (12)
  1. XELJANZ [Suspect]
     Indication: RHEUMATOID ARTHRITIS
     Dosage: 5 MG, 2X/DAY
     Route: 048
     Dates: start: 20130515
  2. XELJANZ [Suspect]
     Dosage: 5 MG, 2X/DAY
  3. NORVASC [Concomitant]
     Dosage: 5 MG
  4. VISTARIL [Concomitant]
     Dosage: 25 MG
  5. ASPIRIN [Concomitant]
     Dosage: 81 MG
  6. TRAZODONE [Concomitant]
     Dosage: 50 MG
  7. KLOR-CON [Concomitant]
     Dosage: 10 MEQ
  8. LEVOTHYROXINE [Concomitant]
     Dosage: 88 MCG
  9. OMEPRAZOLE [Concomitant]
     Dosage: 40 MG
  10. LEXAPRO [Concomitant]
     Dosage: 10 MG, UNK
  11. MAGNESIUM OXIDE [Concomitant]
     Dosage: 400 MG, UNK
  12. VITAMIN D3 [Concomitant]
     Dosage: 1000 IU, UNK

REACTIONS (5)
  - Herpes zoster [Unknown]
  - Weight increased [Unknown]
  - Blood cholesterol increased [Unknown]
  - Joint swelling [Recovering/Resolving]
  - Arthralgia [Recovering/Resolving]
